FAERS Safety Report 6271703-1 (Version None)
Quarter: 2009Q3

REPORT INFORMATION
  Report Type: 
  Country: None (occurrence: None)
  Receive Date: 20090717
  Receipt Date: 20070917
  Transmission Date: 20100115
  Serious: Yes (Other)
  Sender: FDA-Public Use
  Company Number: US-ASTRAZENECA-2006UW23593

PATIENT
  Age: 39 Year
  Sex: Female
  Weight: 70.3 kg

DRUGS (19)
  1. SEROQUEL [Suspect]
     Indication: BIPOLAR DISORDER
     Dosage: 200-800 MG
     Route: 048
     Dates: start: 19990101, end: 20040101
  2. SEROQUEL [Suspect]
     Indication: SLEEP DISORDER
     Dosage: 200-800 MG
     Route: 048
     Dates: start: 19990101, end: 20040101
  3. SEROQUEL [Suspect]
     Indication: HALLUCINATION, AUDITORY
     Dosage: 200-800 MG
     Route: 048
     Dates: start: 19990101, end: 20040101
  4. SEROQUEL [Suspect]
     Dosage: 100 MG QHS, INCREASING TO 200 MG AT BEDTIME
     Route: 048
     Dates: start: 20020808
  5. SEROQUEL [Suspect]
     Dosage: 100 MG QHS, INCREASING TO 200 MG AT BEDTIME
     Route: 048
     Dates: start: 20020808
  6. SEROQUEL [Suspect]
     Dosage: 100 MG QHS, INCREASING TO 200 MG AT BEDTIME
     Route: 048
     Dates: start: 20020808
  7. VICODIN [Concomitant]
     Indication: SLEEP DISORDER
     Dosage: 5/500 MG - 60/6000 MG DAILY
     Dates: start: 20000506
  8. VICODIN [Concomitant]
     Indication: PAIN
     Dosage: 5/500 MG - 60/6000 MG DAILY
     Dates: start: 20000506
  9. OXYCODONE [Concomitant]
     Dates: start: 20060713
  10. MORPHINE [Concomitant]
     Dates: start: 20060713
  11. NEURONTIN [Concomitant]
     Dates: start: 20060713
  12. TEGRETOL [Concomitant]
     Dates: start: 20060713
  13. TOPAMAX [Concomitant]
     Dates: start: 20060713
  14. ORTHO TRI-CYCLEN [Concomitant]
     Dates: start: 20060713
  15. FLONASE [Concomitant]
     Dates: start: 20060713
  16. NAPROXEN [Concomitant]
     Dosage: 500 MG TWO TIMES A DAY AS REQUIRED
     Dates: start: 20041006, end: 20041102
  17. PRILOSEC OTC [Concomitant]
     Indication: GASTROOESOPHAGEAL REFLUX DISEASE
     Dosage: 20 MG - 40 MG DAILY
     Dates: start: 20041006
  18. KLONOPIN [Concomitant]
     Dates: start: 20020808
  19. LITHIUM [Concomitant]
     Dates: start: 20070409

REACTIONS (2)
  - PANCREATITIS [None]
  - PANCREATITIS CHRONIC [None]
